FAERS Safety Report 20986877 (Version 1)
Quarter: 2022Q2

REPORT INFORMATION
  Report Type: Spontaneous
  Country: US (occurrence: None)
  Receive Date: 20220617
  Receipt Date: 20220617
  Transmission Date: 20220721
  Serious: Yes (Hospitalization)
  Sender: FDA-Public Use
  Company Number: None

PATIENT
  Age: 54 Year
  Sex: Female
  Weight: 79.1 kg

DRUGS (8)
  1. JARDIANCE [Suspect]
     Active Substance: EMPAGLIFLOZIN
     Indication: Diabetes mellitus
     Dosage: FREQUENCY : DAILY;?
     Route: 048
  2. BUPROPION [Concomitant]
     Active Substance: BUPROPION
  3. DULOXETINE [Concomitant]
     Active Substance: DULOXETINE
  4. DULOXETINE [Concomitant]
     Active Substance: DULOXETINE
  5. EZETIMIBE [Concomitant]
     Active Substance: EZETIMIBE
  6. Liraglutide 1.2 mg [Concomitant]
  7. Metformin ER 2000 mg [Concomitant]
  8. OMEPRAZOLE [Concomitant]
     Active Substance: OMEPRAZOLE

REACTIONS (1)
  - Fournier^s gangrene [None]

NARRATIVE: CASE EVENT DATE: 20220614
